FAERS Safety Report 5545397-4 (Version None)
Quarter: 2007Q4

REPORT INFORMATION
  Report Type: 
  Country: None (occurrence: None)
  Receive Date: 20071211
  Receipt Date: 20071129
  Transmission Date: 20080405
  Serious: No
  Sender: FDA-Public Use
  Company Number: US-ELI_LILLY_AND_COMPANY-US200712000370

PATIENT
  Age: 55 Year
  Sex: Male

DRUGS (8)
  1. OLANZAPINE [Suspect]
     Dosage: 5 MG, 2/D
  2. DOXAZOSIN MESYLATE [Concomitant]
     Indication: BENIGN PROSTATIC HYPERPLASIA
     Dosage: 4 MG, EACH MORNING
  3. CITALOPRAM [Concomitant]
     Indication: DEPRESSION
     Dosage: 60 MG, EACH MORNING
  4. PSYLLIUM [Concomitant]
     Indication: CONSTIPATION
     Dosage: 1500 G, EACH MORNING
  5. CLONAZEPAM [Concomitant]
     Indication: ANXIETY
     Dosage: 1 MG, EACH EVENING
  6. ESOMEPRAZOLE [Concomitant]
     Indication: DYSPLASIA
     Dosage: 40 MG, EACH EVENING
  7. CYCLOBENZAPRINE HCL [Concomitant]
     Indication: MUSCLE SPASMS
     Dosage: 5 MG, EACH EVENING
  8. CLOZAPINE [Concomitant]
     Indication: SCHIZOPHRENIA, PARANOID TYPE
     Dosage: 400 MG, UNK

REACTIONS (3)
  - HALLUCINATION, AUDITORY [None]
  - SUICIDAL IDEATION [None]
  - WHITE BLOOD CELL COUNT DECREASED [None]
